FAERS Safety Report 4780132-9 (Version None)
Quarter: 2005Q3

REPORT INFORMATION
  Report Type: 
  Country: None (occurrence: None)
  Receive Date: 20050914
  Receipt Date: 20050421
  Transmission Date: 20060218
  Serious: Yes (Hospitalization)
  Sender: FDA-Public Use
  Company Number: 163-20785-05040447

PATIENT
  Age: 74 Year
  Sex: Male

DRUGS (6)
  1. THALOMID [Suspect]
     Indication: MULTIPLE MYELOMA
     Dosage: 100 MG, DAILY, ORAL
     Route: 048
     Dates: start: 20050305, end: 20050410
  2. DEXAMETHASONE [Concomitant]
  3. SYNTHROID [Concomitant]
  4. DURAGESIC-100 [Concomitant]
  5. NEXIUM [Concomitant]
  6. NASAL SPRAY [Concomitant]

REACTIONS (2)
  - CEREBROVASCULAR ACCIDENT [None]
  - HEMIPARESIS [None]
